FAERS Safety Report 10419949 (Version 2)
Quarter: 2014Q3

REPORT INFORMATION
  Report Type: Spontaneous
  Country: NZ (occurrence: NZ)
  Receive Date: 20140829
  Receipt Date: 20140829
  Transmission Date: 20150326
  Serious: Yes (Other)
  Sender: FDA-Public Use
  Company Number: NZ-ABBVIE-13P-118-1053230-00

PATIENT
  Age: 50 Year
  Sex: Male

DRUGS (2)
  1. LEFLUNOMIDE. [Concomitant]
     Active Substance: LEFLUNOMIDE
     Indication: PRODUCT USED FOR UNKNOWN INDICATION
     Dates: start: 2009
  2. HUMIRA [Suspect]
     Active Substance: ADALIMUMAB
     Indication: PSORIATIC ARTHROPATHY
     Dates: start: 2009, end: 2013

REACTIONS (4)
  - Vasculitis [Unknown]
  - Coronary artery bypass [Unknown]
  - Arteritis coronary [Unknown]
  - Angina pectoris [Unknown]

NARRATIVE: CASE EVENT DATE: 201212
